FAERS Safety Report 9802824 (Version 1)
Quarter: 2013Q4

REPORT INFORMATION
  Report Type: Spontaneous
  Country: US (occurrence: None)
  Receive Date: 20131231
  Receipt Date: 20131231
  Transmission Date: 20140711
  Serious: Yes (Hospitalization, Other)
  Sender: FDA-Public Use
  Company Number: US-SEPTODONT-201301640

PATIENT
  Age: 72 Year
  Sex: Male
  Weight: 86 kg

DRUGS (1)
  1. MEPIVACAINE HYDROCHLORIDE [Suspect]
     Indication: LOCAL ANAESTHESIA
     Route: 004
     Dates: start: 20130731, end: 20130731

REACTIONS (5)
  - Dyspnoea [None]
  - Aggression [None]
  - Agitation [None]
  - Screaming [None]
  - No reaction on previous exposure to drug [None]
